APPROVED DRUG PRODUCT: MAGNESIUM SULFATE
Active Ingredient: MAGNESIUM SULFATE
Strength: 4GM/50ML (80MG/ML)
Dosage Form/Route: INJECTABLE;INJECTION
Application: A207967 | Product #003 | TE Code: AP
Applicant: B BRAUN MEDICAL INC
Approved: Apr 26, 2021 | RLD: No | RS: No | Type: RX